FAERS Safety Report 20961078 (Version 3)
Quarter: 2022Q3

REPORT INFORMATION
  Report Type: Spontaneous
  Country: DE (occurrence: DE)
  Receive Date: 20220615
  Receipt Date: 20220810
  Transmission Date: 20221027
  Serious: Yes (Hospitalization, Other)
  Sender: FDA-Public Use
  Company Number: DE-NOVARTISPH-NVSC2022DE133186

PATIENT
  Age: 46 Year
  Sex: Male

DRUGS (22)
  1. MYFORTIC [Suspect]
     Active Substance: MYCOPHENOLATE SODIUM
     Indication: Prophylaxis against transplant rejection
     Dosage: 540 MG, QD
     Route: 065
     Dates: start: 202010
  2. ARANESP [Suspect]
     Active Substance: DARBEPOETIN ALFA
     Indication: Prophylaxis against transplant rejection
     Dosage: 60 UG, QD
     Route: 065
     Dates: start: 202010, end: 202105
  3. ENVARSUS XR [Suspect]
     Active Substance: TACROLIMUS
     Indication: Prophylaxis against transplant rejection
     Dosage: 12 MG, QD
     Route: 065
     Dates: start: 202010
  4. ENVARSUS XR [Suspect]
     Active Substance: TACROLIMUS
     Dosage: 6 MG, QD
     Route: 065
     Dates: start: 202105
  5. ENVARSUS XR [Suspect]
     Active Substance: TACROLIMUS
     Dosage: 2.25 MG, QW (0.75 MILLIGRAM, 3 TIMES/WK)
     Route: 065
     Dates: start: 202105
  6. ENVARSUS XR [Suspect]
     Active Substance: TACROLIMUS
     Dosage: 1 MG (1 MILLIGRAM, EVERY SECOND DAY)
     Route: 065
     Dates: start: 202108
  7. ENVARSUS XR [Suspect]
     Active Substance: TACROLIMUS
     Dosage: 2.25 MG, QW (0.75 MILLIGRAM, 3 TIMES/WK) (EXTENDED RELEASE TABLET)
     Route: 065
     Dates: end: 20220621
  8. ENVARSUS XR [Suspect]
     Active Substance: TACROLIMUS
     Dosage: 2.25 MG, QW (0.75 MILLIGRAM, 3 TIMES/WK)
     Route: 065
     Dates: start: 20220629
  9. METHYLPREDNISOLONE [Suspect]
     Active Substance: METHYLPREDNISOLONE
     Indication: Prophylaxis against transplant rejection
     Dosage: 4 MG, QD
     Route: 065
     Dates: start: 202010
  10. DAPAGLIFLOZIN [Concomitant]
     Active Substance: DAPAGLIFLOZIN
     Indication: Diuretic therapy
     Dosage: 10 MG
     Route: 065
  11. SODIUM BICARBONATE [Concomitant]
     Active Substance: SODIUM BICARBONATE
     Indication: Antacid therapy
     Dosage: 2 G
     Route: 065
     Dates: start: 202010
  12. CARVEDILOL [Concomitant]
     Active Substance: CARVEDILOL
     Indication: Blood pressure measurement
     Dosage: 50 MG
     Route: 065
  13. CANDESARTAN CILEXETIL\HYDROCHLOROTHIAZIDE [Concomitant]
     Active Substance: CANDESARTAN CILEXETIL\HYDROCHLOROTHIAZIDE
     Indication: Blood pressure measurement
     Dosage: 32 MG
     Route: 065
  14. PANTOPRAZOLE [Concomitant]
     Active Substance: PANTOPRAZOLE
     Indication: Product used for unknown indication
     Dosage: 20 MG ( TUESDAY-THURSDAY-SATURDAY-SUNDAY)
     Route: 065
     Dates: start: 202010
  15. TAMSULOSIN [Concomitant]
     Active Substance: TAMSULOSIN
     Indication: Prostate infection
     Dosage: 0.4 MG
     Route: 065
  16. MOXONIDINE [Concomitant]
     Active Substance: MOXONIDINE
     Indication: Blood pressure measurement
     Dosage: 0.6 MG
     Route: 065
  17. CARMEN [Concomitant]
     Indication: Blood pressure measurement
     Dosage: 20 MG
     Route: 065
  18. CHOLECALCIFEROL [Concomitant]
     Active Substance: CHOLECALCIFEROL
     Indication: Product used for unknown indication
     Dosage: UNK, EVERY UNEVEN WEEK ON MONDAY
     Route: 065
  19. FOLIC ACID [Concomitant]
     Active Substance: FOLIC ACID
     Indication: Product used for unknown indication
     Dosage: 5 MG
     Route: 065
  20. TORSEMIDE [Concomitant]
     Active Substance: TORSEMIDE
     Indication: Diuretic therapy
     Dosage: 30 MG
     Route: 065
     Dates: start: 202010
  21. CLONIDINE HYDROCHLORIDE [Concomitant]
     Active Substance: CLONIDINE HYDROCHLORIDE
     Indication: Blood pressure measurement
     Dosage: 250 MG
     Route: 065
  22. BENZBROMARON AL [Concomitant]
     Indication: Blood uric acid increased
     Dosage: 100 MG
     Route: 065

REACTIONS (5)
  - Transplant rejection [Recovered/Resolved]
  - Anal abscess [Recovered/Resolved]
  - Fluid retention [Recovered/Resolved]
  - Blood pressure increased [Recovered/Resolved]
  - Off label use [Not Recovered/Not Resolved]

NARRATIVE: CASE EVENT DATE: 20210501
